FAERS Safety Report 21253893 (Version 1)
Quarter: 2022Q3

REPORT INFORMATION
  Report Type: Spontaneous
  Country: US (occurrence: None)
  Receive Date: 20220824
  Receipt Date: 20220824
  Transmission Date: 20221026
  Serious: Yes (Hospitalization)
  Sender: FDA-Public Use
  Company Number: None

PATIENT
  Age: 74 Year
  Sex: Female

DRUGS (3)
  1. REMICADE [Suspect]
     Active Substance: INFLIXIMAB
     Indication: Rheumatoid arthritis
     Dosage: FREQUENCY : MONTHLY;?
     Route: 042
  2. Norco 10/325mg [Concomitant]
     Dates: start: 20220729, end: 20220820
  3. CARISOPRODOL [Concomitant]
     Active Substance: CARISOPRODOL
     Dates: start: 20220729, end: 20220820

REACTIONS (4)
  - Deep vein thrombosis [None]
  - Pulmonary embolism [None]
  - Factor VIII inhibition [None]
  - Muscle spasticity [None]

NARRATIVE: CASE EVENT DATE: 20220801
